FAERS Safety Report 7163741-1 (Version None)
Quarter: 2010Q4

REPORT INFORMATION
  Report Type: 
  Country: None (occurrence: None)
  Receive Date: 20101215
  Receipt Date: 20100608
  Transmission Date: 20110411
  Serious: Yes (Hospitalization, Other)
  Sender: FDA-Public Use
  Company Number: DE-PFIZER INC-2010071363

PATIENT
  Age: 76 Year
  Sex: Female

DRUGS (25)
  1. LYRICA [Suspect]
     Dosage: 25 MG/DAY
     Route: 048
     Dates: start: 20090710, end: 20090710
  2. LYRICA [Suspect]
     Dosage: 50 MG/DAY
     Route: 048
     Dates: start: 20090711, end: 20090711
  3. LYRICA [Suspect]
     Dosage: 75 MG/DAY
     Route: 048
     Dates: start: 20090713, end: 20090714
  4. LYRICA [Suspect]
     Dosage: 100 MG/DAY
     Route: 048
     Dates: start: 20090714, end: 20090715
  5. LYRICA [Suspect]
     Dosage: 50MG/DAY
     Route: 048
     Dates: start: 20090716, end: 20090716
  6. LYRICA [Suspect]
     Dosage: 25 MG/DAY
     Route: 048
     Dates: start: 20090717, end: 20090719
  7. LYRICA [Suspect]
     Dosage: 50 MG/DAY
     Route: 048
     Dates: start: 20090720, end: 20090723
  8. LYRICA [Suspect]
     Dosage: 100 MG/DAY
     Route: 048
     Dates: start: 20090724
  9. ZYPREXA [Suspect]
     Dosage: 10 MG/DAY
     Route: 048
     Dates: end: 20090609
  10. ZYPREXA [Suspect]
     Dosage: 5 MG/DAY
     Route: 048
     Dates: start: 20090711, end: 20090713
  11. PROTHIPENDYL [Suspect]
     Dosage: 40 MG/DAY
     Route: 048
     Dates: start: 20090709, end: 20090709
  12. PROTHIPENDYL [Suspect]
     Dosage: 80 MG/DAY
     Route: 048
     Dates: start: 20090710
  13. AMIODARONE [Suspect]
     Dosage: 200 MG/DAY
     Route: 048
  14. CYMBALTA [Concomitant]
     Dosage: 90 MG/DAY
     Route: 048
     Dates: end: 20090709
  15. CYMBALTA [Concomitant]
     Dosage: 60 MG/DAY
     Route: 048
     Dates: start: 20090710
  16. SOLVEX [Concomitant]
     Dosage: 8 MG/DAY
     Route: 048
     Dates: end: 20090715
  17. ACTRAPID [Concomitant]
     Dosage: 18 IU/DAY
     Dates: start: 20090709
  18. LEVOTHYROXINE [Concomitant]
     Dosage: 0.05 MG/DAY
     Route: 048
  19. KALINOR [Concomitant]
     Dosage: 600 MG/DAY
     Route: 048
     Dates: end: 20090713
  20. KALINOR [Concomitant]
     Dosage: 1200MG/DAY
     Route: 048
     Dates: start: 20090714, end: 20090729
  21. ASPIRIN [Concomitant]
     Dosage: 100 MG/DAY
     Route: 048
     Dates: end: 20090715
  22. SIMVASTATIN [Concomitant]
     Dosage: 10 MG/DAY
     Route: 048
     Dates: end: 20090716
  23. XIPAMIDE [Concomitant]
     Dosage: 10 MG/DAY
     Route: 048
     Dates: end: 20090714
  24. NEXIUM [Concomitant]
     Dosage: 20 MG/DAY
     Route: 048
  25. FUROSEMID [Concomitant]
     Dosage: 20 MG/DAY
     Route: 048

REACTIONS (6)
  - DIZZINESS [None]
  - ELECTROCARDIOGRAM QT PROLONGED [None]
  - FALL [None]
  - HYPOKALAEMIA [None]
  - HYPONATRAEMIA [None]
  - SYNCOPE [None]
